FAERS Safety Report 5907890-1 (Version None)
Quarter: 2008Q4

REPORT INFORMATION
  Report Type: 
  Country: None (occurrence: None)
  Receive Date: 20081003
  Receipt Date: 20080923
  Transmission Date: 20090506
  Serious: Yes (Death, Hospitalization)
  Sender: FDA-Public Use
  Company Number: US-PFIZER INC-2008065194

PATIENT
  Sex: Female
  Weight: 68.3 kg

DRUGS (1)
  1. SUTENT [Suspect]
     Indication: METASTATIC RENAL CELL CARCINOMA
     Route: 048
     Dates: start: 20080522, end: 20080812

REACTIONS (4)
  - DEHYDRATION [None]
  - PNEUMONIA [None]
  - PULMONARY EMBOLISM [None]
  - SYNCOPE [None]
